FAERS Safety Report 13675907 (Version 1)
Quarter: 2017Q2

REPORT INFORMATION
  Report Type: Spontaneous
  Country: CO (occurrence: CO)
  Receive Date: 20170621
  Receipt Date: 20170621
  Transmission Date: 20170830
  Serious: Yes (Other)
  Sender: FDA-Public Use
  Company Number: CO-AMGEN-COLSP2017091679

PATIENT
  Age: 78 Year

DRUGS (3)
  1. NPLATE [Suspect]
     Active Substance: ROMIPLOSTIM
     Indication: MYELODYSPLASTIC SYNDROME
     Dosage: 750 MCG, QWK
     Route: 058
  2. AZACITIDINE. [Concomitant]
     Active Substance: AZACITIDINE
     Dosage: UNK
  3. NPLATE [Suspect]
     Active Substance: ROMIPLOSTIM
     Indication: THROMBOCYTOPENIA

REACTIONS (2)
  - Thrombocytopenia [Unknown]
  - Off label use [Unknown]
